FAERS Safety Report 13553459 (Version 2)
Quarter: 2017Q2

REPORT INFORMATION
  Report Type: Spontaneous
  Country: US (occurrence: US)
  Receive Date: 20170517
  Receipt Date: 20170519
  Transmission Date: 20170830
  Serious: No
  Sender: FDA-Public Use
  Company Number: US-BAYER-2017-083512

PATIENT
  Age: 61 Year
  Sex: Female
  Weight: 66.67 kg

DRUGS (1)
  1. MIRALAX [Suspect]
     Active Substance: POLYETHYLENE GLYCOL 3350
     Indication: COLONOSCOPY
     Dosage: 8.3 OZ
     Route: 048
     Dates: start: 200705, end: 2012

REACTIONS (6)
  - Off label use [Unknown]
  - Product use in unapproved indication [Unknown]
  - Product use in unapproved indication [Unknown]
  - Circumstance or information capable of leading to medication error [None]
  - Off label use [Unknown]
  - Product use issue [Unknown]

NARRATIVE: CASE EVENT DATE: 200705
